FAERS Safety Report 9648965 (Version 1)
Quarter: 2013Q4

REPORT INFORMATION
  Report Type: Spontaneous
  Country: US (occurrence: US)
  Receive Date: 20131028
  Receipt Date: 20131028
  Transmission Date: 20140711
  Serious: Yes (Hospitalization)
  Sender: FDA-Public Use
  Company Number: US-PFIZER INC-2013305071

PATIENT
  Sex: Female

DRUGS (3)
  1. ALDACTONE [Suspect]
     Dosage: UNK
  2. PROCRIT [Suspect]
     Dosage: UNK
  3. LETAIRIS [Suspect]
     Dosage: 5 MG QD
     Route: 048

REACTIONS (4)
  - Dehydration [Unknown]
  - Meniscus injury [Unknown]
  - Haematoma [Unknown]
  - Anaemia [Unknown]
